FAERS Safety Report 20631856 (Version 2)
Quarter: 2022Q2

REPORT INFORMATION
  Report Type: Spontaneous
  Country: US (occurrence: US)
  Receive Date: 20220324
  Receipt Date: 20220428
  Transmission Date: 20220721
  Serious: No
  Sender: FDA-Public Use
  Company Number: US-PFIZER INC-202200413393

PATIENT
  Age: 57 Year
  Sex: Female

DRUGS (1)
  1. IBRANCE [Suspect]
     Active Substance: PALBOCICLIB
     Dosage: UNK
     Dates: start: 20220302

REACTIONS (5)
  - Fatigue [Not Recovered/Not Resolved]
  - Bone pain [Unknown]
  - White blood cell count decreased [Recovering/Resolving]
  - Abdominal pain upper [Unknown]
  - Epistaxis [Unknown]

NARRATIVE: CASE EVENT DATE: 20220301
